FAERS Safety Report 7775172-1 (Version None)
Quarter: 2011Q3

REPORT INFORMATION
  Report Type: 
  Country: None (occurrence: None)
  Receive Date: 20110923
  Receipt Date: 20110916
  Transmission Date: 20111222
  Serious: Yes (Death)
  Sender: FDA-Public Use
  Company Number: CN-GENENTECH-324331

PATIENT
  Sex: Male
  Weight: 55 kg

DRUGS (1)
  1. MABTHERA [Suspect]
     Indication: NON-HODGKIN'S LYMPHOMA
     Dosage: 600 MG, UNK
     Route: 041
     Dates: start: 20110911, end: 20110911

REACTIONS (3)
  - BRAIN OEDEMA [None]
  - DYSPHORIA [None]
  - BRAIN HERNIATION [None]
